FAERS Safety Report 10349052 (Version 2)
Quarter: 2014Q3

REPORT INFORMATION
  Report Type: Report from Study
  Country: US (occurrence: US)
  Receive Date: 20140729
  Receipt Date: 20140729
  Transmission Date: 20150326
  Serious: Yes (Hospitalization)
  Sender: FDA-Public Use
  Company Number: US-TEVA-495110USA

PATIENT
  Age: 32 Year
  Sex: Female

DRUGS (2)
  1. COPAXONE [Suspect]
     Active Substance: GLATIRAMER ACETATE
     Indication: MULTIPLE SCLEROSIS
     Dates: start: 20140627, end: 20140721
  2. NITRO [Suspect]
     Active Substance: NITROGLYCERIN

REACTIONS (5)
  - Aortic disorder [Unknown]
  - Chest pain [Unknown]
  - Cardiac disorder [Unknown]
  - Angiopathy [Unknown]
  - Blood pressure decreased [Unknown]

NARRATIVE: CASE EVENT DATE: 20140712
